FAERS Safety Report 19127294 (Version 1)
Quarter: 2021Q2

REPORT INFORMATION
  Report Type: Spontaneous
  Country: US (occurrence: US)
  Receive Date: 20210413
  Receipt Date: 20210413
  Transmission Date: 20210717
  Serious: No
  Sender: FDA-Public Use
  Company Number: US-ALLERGAN-2018773US

PATIENT
  Sex: Female

DRUGS (1)
  1. LATISSE [Suspect]
     Active Substance: BIMATOPROST
     Indication: PRODUCT USED FOR UNKNOWN INDICATION
     Dosage: 2 GTT, QHS
     Route: 061
     Dates: start: 20200406, end: 20200406

REACTIONS (6)
  - Eyelid irritation [Not Recovered/Not Resolved]
  - Patient dissatisfaction with treatment [Unknown]
  - Eyelid sensory disorder [Recovering/Resolving]
  - Eyelids pruritus [Recovering/Resolving]
  - Eyelid skin dryness [Not Recovered/Not Resolved]
  - Swelling of eyelid [Not Recovered/Not Resolved]

NARRATIVE: CASE EVENT DATE: 20200506
